FAERS Safety Report 5511518-2 (Version None)
Quarter: 2007Q4

REPORT INFORMATION
  Report Type: 
  Country: None (occurrence: None)
  Receive Date: 20071109
  Receipt Date: 20071029
  Transmission Date: 20080405
  Serious: Yes (Death, Hospitalization)
  Sender: FDA-Public Use
  Company Number: B0494212A

PATIENT
  Age: 80 Year
  Sex: Female

DRUGS (12)
  1. DEROXAT [Suspect]
     Dosage: 20MG AT NIGHT
     Route: 048
     Dates: start: 20070416, end: 20070420
  2. GARDENAL [Suspect]
     Indication: CONVULSION
     Dosage: 100MG AT NIGHT
     Route: 048
     Dates: start: 20070330, end: 20070420
  3. RAMIPRIL [Concomitant]
     Dosage: 5MG PER DAY
     Route: 048
     Dates: start: 20050323, end: 20070302
  4. CARDENSIEL [Concomitant]
     Dosage: 1.25MG PER DAY
     Route: 048
     Dates: start: 20050324
  5. OMEPRAZOLE [Concomitant]
     Dosage: 20MG PER DAY
     Route: 048
     Dates: start: 20050324, end: 20070502
  6. DEPAKINE CHRONO [Concomitant]
     Dosage: 625MG PER DAY
     Route: 048
     Dates: start: 20070430, end: 20070502
  7. PREVISCAN [Concomitant]
     Route: 048
     Dates: start: 20070201
  8. CETIRIZINE HCL [Concomitant]
     Route: 048
     Dates: start: 20070420
  9. SOLU-MEDROL [Concomitant]
     Route: 048
     Dates: start: 20070423, end: 20070426
  10. PRACTAZIN [Concomitant]
     Dosage: 1TAB PER DAY
     Route: 048
     Dates: start: 20060913, end: 20070502
  11. LANSOYL [Concomitant]
     Route: 048
     Dates: start: 20050324, end: 20070502
  12. PARACETAMOL [Concomitant]
     Route: 048
     Dates: start: 20060320, end: 20070502

REACTIONS (11)
  - EOSINOPHILIA [None]
  - GENERAL PHYSICAL HEALTH DETERIORATION [None]
  - HYPERGLYCAEMIA [None]
  - HYPOKALAEMIA [None]
  - LEUKOCYTOSIS [None]
  - NEUROLOGICAL SYMPTOM [None]
  - PRURIGO [None]
  - RASH GENERALISED [None]
  - RASH MORBILLIFORM [None]
  - TOXIC SKIN ERUPTION [None]
  - TRANSAMINASES INCREASED [None]
